FAERS Safety Report 25109893 (Version 1)
Quarter: 2025Q1

REPORT INFORMATION
  Report Type: Spontaneous
  Country: US (occurrence: US)
  Receive Date: 20250324
  Receipt Date: 20250324
  Transmission Date: 20250408
  Serious: Yes (Death)
  Sender: BAXTER
  Company Number: US-BAXTER-2025BAX012732

PATIENT

DRUGS (2)
  1. NEXTERONE [Suspect]
     Active Substance: AMIODARONE HYDROCHLORIDE
     Route: 042
  2. DEXTROSE [Suspect]
     Active Substance: DEXTROSE MONOHYDRATE
     Indication: Medication dilution
     Route: 042

REACTIONS (4)
  - Death [Fatal]
  - Hypotension [Unknown]
  - Product barcode issue [Unknown]
  - Product administration error [Unknown]
